FAERS Safety Report 23149450 (Version 1)
Quarter: 2023Q4

REPORT INFORMATION
  Report Type: Report from Study
  Country: US (occurrence: US)
  Receive Date: 20231106
  Receipt Date: 20231106
  Transmission Date: 20240110
  Serious: Yes (Other)
  Sender: FDA-Public Use
  Company Number: US-SUN PHARMACEUTICAL INDUSTRIES LTD-2023R1-416897

PATIENT
  Age: 54 Year
  Sex: Female

DRUGS (3)
  1. METHYLPREDNISOLONE [Suspect]
     Active Substance: METHYLPREDNISOLONE
     Indication: Eosinophilic fasciitis
     Dosage: 1000 MILLIGRAM 6 TIMES WEEKLY
     Route: 065
  2. PREDNISONE [Suspect]
     Active Substance: PREDNISONE
     Indication: Eosinophilic fasciitis
     Dosage: 60 MILLIGRAM, DAILY
     Route: 065
  3. MYCOPHENOLATE MOFETIL [Suspect]
     Active Substance: MYCOPHENOLATE MOFETIL
     Indication: Eosinophilic fasciitis
     Dosage: 1500 MILLIGRAM, BID
     Route: 065

REACTIONS (1)
  - Therapy partial responder [Unknown]
